FAERS Safety Report 13628558 (Version 4)
Quarter: 2020Q3

REPORT INFORMATION
  Report Type: Report from Study
  Country: JP (occurrence: JP)
  Receive Date: 20170608
  Receipt Date: 20200821
  Transmission Date: 20201102
  Serious: Yes (Death)
  Sender: FDA-Public Use
  Company Number: JP-BAYER-2017-103942

PATIENT
  Age: 54 Year
  Sex: Female
  Weight: 28.4 kg

DRUGS (18)
  1. SPIRONOLACTONE. [Concomitant]
     Active Substance: SPIRONOLACTONE
     Dosage: DAILY DOSE 50 MG
     Route: 048
     Dates: end: 20170323
  2. CLEANAL [Concomitant]
     Active Substance: FUDOSTEINE
     Indication: BRONCHITIS CHRONIC
     Dosage: DAILY DOSE 1200 MG
     Route: 048
     Dates: end: 20170323
  3. CLARITHROMYCIN. [Concomitant]
     Active Substance: CLARITHROMYCIN
     Indication: BRONCHITIS CHRONIC
     Dosage: DAILY DOSE 400 MG
     Route: 048
     Dates: end: 20170323
  4. ALDACTONE A [Concomitant]
     Active Substance: SPIRONOLACTONE
     Indication: RIGHT VENTRICULAR FAILURE
     Dosage: DAILY DOSE 50 MG
     Route: 048
     Dates: end: 20170323
  5. ADEMPAS [Suspect]
     Active Substance: RIOCIGUAT
     Indication: PULMONARY ARTERIAL HYPERTENSION
     Dosage: DAILY DOSE 3 MG
     Route: 048
     Dates: start: 20170314, end: 20170323
  6. FUROSEMIDE. [Concomitant]
     Active Substance: FUROSEMIDE
     Indication: RIGHT VENTRICULAR FAILURE
     Dosage: DAILY DOSE 40 MG
     Route: 048
     Dates: end: 20170323
  7. AZULENE?GLUTAMINE [Concomitant]
     Active Substance: GLUTAMINE\SODIUM GUALENATE
     Indication: CHRONIC GASTRITIS
     Dosage: DAILY DOSE 3 DF
     Route: 048
     Dates: end: 20170323
  8. MECOBALAMIN [Concomitant]
     Active Substance: METHYLCOBALAMIN
     Indication: NEUROPATHY PERIPHERAL
     Dosage: DAILY DOSE 1500 ?G
     Route: 048
     Dates: end: 20170323
  9. MAGNESIUM OXIDE. [Concomitant]
     Active Substance: MAGNESIUM OXIDE
     Indication: CONSTIPATION
     Dosage: DAILY DOSE 750 MG
     Route: 048
     Dates: end: 20170323
  10. CLARITHROMYCIN. [Concomitant]
     Active Substance: CLARITHROMYCIN
     Indication: BRONCHITIS CHRONIC
     Dosage: DAILY DOSE 400 MG
     Route: 048
  11. CELECOXIB. [Concomitant]
     Active Substance: CELECOXIB
     Indication: BACK PAIN
     Dosage: DAILY DOSE 200 MG
     Route: 048
     Dates: end: 20170323
  12. ZOLPIDEM TARTRATE. [Concomitant]
     Active Substance: ZOLPIDEM TARTRATE
     Dosage: DAILY DOSE 5 MG
     Route: 048
     Dates: end: 20170323
  13. METHYCOBAL [Concomitant]
     Active Substance: METHYLCOBALAMIN
     Dosage: DAILY DOSE 1500 ?G
     Route: 048
     Dates: end: 20170323
  14. SHOSEIRYUTO [ASARUM SPP. ROOT;CINNAMOMUM CASSIA BARK;EPHEDRA SPP. [Concomitant]
     Dosage: DAILY DOSE 6 G
     Route: 048
     Dates: end: 20170323
  15. OXYGEN. [Concomitant]
     Active Substance: OXYGEN
     Indication: PULMONARY ARTERIAL HYPERTENSION
     Dosage: UNK
     Dates: end: 20170323
  16. THEO?DUR [Concomitant]
     Active Substance: THEOPHYLLINE ANHYDROUS
     Indication: ASTHMA
     Dosage: DAILY DOSE 200 MG
     Route: 048
     Dates: end: 20170323
  17. ADEMPAS [Suspect]
     Active Substance: RIOCIGUAT
     Indication: PULMONARY ARTERIAL HYPERTENSION
     Dosage: DAILY DOSE 1.5 MG
     Route: 048
     Dates: start: 20170308, end: 20170313
  18. HALRACK [Concomitant]
     Active Substance: TRIAZOLAM
     Indication: INSOMNIA
     Dosage: DAILY DOSE 0.125 MG
     Route: 048
     Dates: end: 20170323

REACTIONS (1)
  - Cardio-respiratory arrest [Fatal]

NARRATIVE: CASE EVENT DATE: 20170323
